FAERS Safety Report 20699644 (Version 1)
Quarter: 2022Q2

REPORT INFORMATION
  Report Type: Spontaneous
  Country: US (occurrence: None)
  Receive Date: 20220412
  Receipt Date: 20220412
  Transmission Date: 20220720
  Serious: No
  Sender: FDA-Public Use
  Company Number: US-Merck Healthcare KGaA-9309494

PATIENT
  Sex: Female

DRUGS (1)
  1. REBIF [Suspect]
     Active Substance: INTERFERON BETA-1A
     Indication: Multiple sclerosis
     Dosage: PREFILLED SYRINGE
     Route: 058
     Dates: start: 201610

REACTIONS (4)
  - Multiple sclerosis relapse [Unknown]
  - Temperature intolerance [Unknown]
  - Chest discomfort [Unknown]
  - Product use issue [Unknown]
